FAERS Safety Report 9909207 (Version 1)
Quarter: 2014Q1

REPORT INFORMATION
  Report Type: Spontaneous
  Country: US (occurrence: US)
  Receive Date: 20140219
  Receipt Date: 20140219
  Transmission Date: 20141002
  Serious: Yes (Life-Threatening, Hospitalization, Disabling, Other)
  Sender: FDA-Public Use
  Company Number: US-JNJFOC-20140207029

PATIENT
  Sex: Female
  Weight: 39.46 kg

DRUGS (2)
  1. TRAMADOL [Suspect]
     Indication: PAIN
     Route: 048
     Dates: start: 2012
  2. TRAMADOL [Suspect]
     Indication: PAIN
     Route: 048
     Dates: start: 201209, end: 201209

REACTIONS (9)
  - Grand mal convulsion [Recovered/Resolved]
  - Cardiac arrest [Unknown]
  - Brain death [Recovered/Resolved]
  - Stupor [Recovered/Resolved]
  - Convulsion [Recovered/Resolved]
  - Blindness [Not Recovered/Not Resolved]
  - Bedridden [Not Recovered/Not Resolved]
  - Weight increased [Not Recovered/Not Resolved]
  - Balance disorder [Not Recovered/Not Resolved]
